FAERS Safety Report 11026331 (Version 1)
Quarter: 2015Q2

REPORT INFORMATION
  Report Type: Spontaneous
  Country: US (occurrence: None)
  Receive Date: 20150413
  Receipt Date: 20150413
  Transmission Date: 20150821
  Serious: Yes (Other)
  Sender: FDA-Public Use
  Company Number: None

PATIENT
  Age: 9 Year
  Sex: Male
  Weight: 44.91 kg

DRUGS (6)
  1. TYLENOL/MOTRIN [Concomitant]
  2. ZYRTEC/ALGERIA [Concomitant]
  3. ALBUTEROL INHALER [Concomitant]
     Active Substance: ALBUTEROL
  4. METHYLPHENIDATE 54 MG MALLINCKRODT [Suspect]
     Active Substance: METHYLPHENIDATE
     Indication: ATTENTION DEFICIT/HYPERACTIVITY DISORDER
     Dosage: 1 PILL  TAKEN BY MOUTH
     Route: 048
     Dates: start: 20141030, end: 20141102
  5. STRATTERA [Concomitant]
     Active Substance: ATOMOXETINE HYDROCHLORIDE
  6. ADVAR DISK [Concomitant]

REACTIONS (6)
  - Peripheral coldness [None]
  - Peripheral swelling [None]
  - Feeling hot [None]
  - Muscle twitching [None]
  - Abnormal behaviour [None]
  - Musculoskeletal stiffness [None]

NARRATIVE: CASE EVENT DATE: 20141101
